FAERS Safety Report 4603275-9 (Version None)
Quarter: 2005Q1

REPORT INFORMATION
  Report Type: 
  Country: None (occurrence: None)
  Receive Date: 20050308
  Receipt Date: 20050224
  Transmission Date: 20050727
  Serious: Yes (Death)
  Sender: FDA-Public Use
  Company Number: 2005035916

PATIENT
  Age: 70 Year
  Sex: Male

DRUGS (2)
  1. IRINOTECAN HCL [Suspect]
     Indication: COLORECTAL CANCER RECURRENT
     Dosage: 120 MG/M2, INTRAVENOUS
     Route: 042
     Dates: start: 20040510, end: 20040705
  2. TEGAFUR (TEGAFUR) [Suspect]
     Indication: COLORECTAL CANCER RECURRENT
     Dosage: ORAL
     Route: 048
     Dates: start: 20040510

REACTIONS (2)
  - CONDITION AGGRAVATED [None]
  - INTERSTITIAL LUNG DISEASE [None]
